FAERS Safety Report 20279248 (Version 3)
Quarter: 2022Q1

REPORT INFORMATION
  Report Type: Report from Study
  Country: CA (occurrence: CA)
  Receive Date: 20220103
  Receipt Date: 20220122
  Transmission Date: 20220423
  Serious: Yes (Death, Other)
  Sender: FDA-Public Use
  Company Number: CA-TAKEDA-2021TUS083392

PATIENT
  Age: 38 Year
  Sex: Male

DRUGS (6)
  1. HUMAN IMMUNOGLOBULIN G [Suspect]
     Active Substance: HUMAN IMMUNOGLOBULIN G
     Indication: Primary immunodeficiency syndrome
     Dosage: 10 GRAM, 1/WEEK
     Route: 065
     Dates: start: 20200629
  2. KEPPRA [Concomitant]
     Active Substance: LEVETIRACETAM
     Dosage: 1500 MILLIGRAM, BID
  3. DEPAKENE [Concomitant]
     Active Substance: VALPROIC ACID
     Dosage: 800 MILLIGRAM, TID
  4. VITAMINS [Concomitant]
     Active Substance: VITAMINS
  5. FAMOTIDINE [Concomitant]
     Active Substance: FAMOTIDINE
     Dosage: 20 MILLIGRAM
  6. DILANTIN [Concomitant]
     Active Substance: PHENYTOIN
     Dosage: 300 MILLIGRAM, QD

REACTIONS (1)
  - Death [Fatal]

NARRATIVE: CASE EVENT DATE: 20210501
